FAERS Safety Report 15627529 (Version 1)
Quarter: 2018Q4

REPORT INFORMATION
  Report Type: Spontaneous
  Country: MA (occurrence: MA)
  Receive Date: 20181116
  Receipt Date: 20181116
  Transmission Date: 20190205
  Serious: Yes (Hospitalization)
  Sender: FDA-Public Use
  Company Number: PHHY2018MA153089

PATIENT
  Age: 12 Year
  Sex: Male

DRUGS (2)
  1. AMOXICILLIN. [Interacting]
     Active Substance: AMOXICILLIN
     Indication: PRODUCT USED FOR UNKNOWN INDICATION
     Route: 065
  2. TEGRETOL [Suspect]
     Active Substance: CARBAMAZEPINE
     Indication: NEURALGIA
     Route: 065

REACTIONS (4)
  - Drug interaction [Unknown]
  - Condition aggravated [Unknown]
  - Toxic epidermal necrolysis [Unknown]
  - Dermatitis bullous [Unknown]
